FAERS Safety Report 4652841-3 (Version None)
Quarter: 2005Q2

REPORT INFORMATION
  Report Type: 
  Country: None (occurrence: None)
  Receive Date: 20050502
  Receipt Date: 20050420
  Transmission Date: 20051028
  Serious: No
  Sender: FDA-Public Use
  Company Number: 2005-127732-NL

PATIENT
  Age: 33 Year
  Sex: Male

DRUGS (3)
  1. MIRTAZAPINE [Suspect]
     Indication: DEPRESSION
     Dosage: 1 DF/2 DF/3 DF, ORAL
     Route: 048
     Dates: start: 20050325, end: 20050329
  2. MIRTAZAPINE [Suspect]
     Indication: DEPRESSION
     Dosage: 1 DF/2 DF/3 DF, ORAL
     Route: 048
     Dates: start: 20050330, end: 20050406
  3. MIRTAZAPINE [Suspect]
     Indication: DEPRESSION
     Dosage: 1 DF/2 DF/3 DF, ORAL
     Route: 048
     Dates: start: 20050407, end: 20050417

REACTIONS (10)
  - ALANINE AMINOTRANSFERASE INCREASED [None]
  - ASPARTATE AMINOTRANSFERASE INCREASED [None]
  - BLOOD ALKALINE PHOSPHATASE INCREASED [None]
  - BLOOD LACTATE DEHYDROGENASE INCREASED [None]
  - CONTUSION [None]
  - FALL [None]
  - GAMMA-GLUTAMYLTRANSFERASE INCREASED [None]
  - HEAD INJURY [None]
  - HEPATIC TRAUMA [None]
  - LIVER SCAN ABNORMAL [None]
